FAERS Safety Report 16342720 (Version 1)
Quarter: 2019Q2

REPORT INFORMATION
  Report Type: Spontaneous
  Country: PL (occurrence: PL)
  Receive Date: 20190522
  Receipt Date: 20190522
  Transmission Date: 20190711
  Serious: Yes (Other)
  Sender: FDA-Public Use
  Company Number: PL-JNJFOC-20190525929

PATIENT
  Age: 40 Year
  Sex: Male

DRUGS (1)
  1. HALOPERIDOL. [Suspect]
     Active Substance: HALOPERIDOL
     Indication: TIC
     Route: 065

REACTIONS (5)
  - Restlessness [Unknown]
  - Hallucination [Unknown]
  - Arrhythmia [Unknown]
  - Headache [Unknown]
  - Insomnia [Unknown]
